FAERS Safety Report 25599501 (Version 1)
Quarter: 2025Q3

REPORT INFORMATION
  Report Type: Report from Study
  Country: US (occurrence: US)
  Receive Date: 20250724
  Receipt Date: 20250724
  Transmission Date: 20251021
  Serious: Yes (Other)
  Sender: JOHNSON AND JOHNSON
  Company Number: US-JNJFOC-20250724030

PATIENT
  Age: 55 Year
  Sex: Female

DRUGS (4)
  1. SPRAVATO [Suspect]
     Active Substance: ESKETAMINE
     Indication: Depression
     Route: 045
     Dates: start: 20250702, end: 20250702
  2. SPRAVATO [Suspect]
     Active Substance: ESKETAMINE
     Route: 045
     Dates: start: 20250709, end: 20250716
  3. SPRAVATO [Suspect]
     Active Substance: ESKETAMINE
     Route: 045
     Dates: start: 20250718, end: 20250718
  4. CLONIDINE [Concomitant]
     Active Substance: CLONIDINE
     Indication: Blood pressure increased
     Route: 065

REACTIONS (2)
  - Hypertension [Recovered/Resolved]
  - Physical examination abnormal [Unknown]

NARRATIVE: CASE EVENT DATE: 20250718
